FAERS Safety Report 10882281 (Version 1)
Quarter: 2015Q1

REPORT INFORMATION
  Report Type: Report from Study
  Country: BR (occurrence: BR)
  Receive Date: 20150303
  Receipt Date: 20150303
  Transmission Date: 20150721
  Serious: Yes (Disabling, Other)
  Sender: FDA-Public Use
  Company Number: BR-BAYER-2014-122918

PATIENT
  Age: 38 Year
  Sex: Male

DRUGS (8)
  1. MESTINON [Concomitant]
     Active Substance: PYRIDOSTIGMINE BROMIDE
     Indication: MUSCULAR WEAKNESS
     Dosage: 3 DF, QD
     Route: 048
     Dates: start: 201406
  2. MANTIDAN [Concomitant]
     Active Substance: AMANTADINE HYDROCHLORIDE
     Indication: MOVEMENT DISORDER
     Dosage: 2 DF, QD
     Route: 048
     Dates: start: 201406
  3. VITAMIN D [Concomitant]
     Active Substance: CHOLECALCIFEROL
     Indication: SUPPLEMENTATION THERAPY
     Dosage: 10 GTT, QD
     Route: 048
     Dates: start: 201406
  4. OMEGA 3 [Concomitant]
     Active Substance: OMEGA-3 FATTY ACIDS
     Indication: SUPPLEMENTATION THERAPY
     Dosage: 1 DF, QD
     Route: 048
     Dates: start: 201406
  5. PONDERA [Concomitant]
     Active Substance: PAROXETINE HYDROCHLORIDE
     Indication: SLEEP DISORDER
  6. BETAFERON [Suspect]
     Active Substance: INTERFERON BETA-1B
     Indication: RELAPSING-REMITTING MULTIPLE SCLEROSIS
     Dosage: 1 ML, QOD
     Route: 058
     Dates: start: 201101
  7. PONDERA [Concomitant]
     Active Substance: PAROXETINE HYDROCHLORIDE
     Indication: ANXIETY
     Dosage: 1 DF, QD
     Route: 048
     Dates: start: 201406
  8. MESTINON [Concomitant]
     Active Substance: PYRIDOSTIGMINE BROMIDE
     Indication: FATIGUE

REACTIONS (8)
  - Visual acuity reduced [Not Recovered/Not Resolved]
  - Onychomycosis [None]
  - Vision blurred [Not Recovered/Not Resolved]
  - Mobility decreased [None]
  - Retinal detachment [Not Recovered/Not Resolved]
  - Abasia [None]
  - Asthenia [None]
  - Visual impairment [None]

NARRATIVE: CASE EVENT DATE: 201106
